FAERS Safety Report 6371539-7 (Version None)
Quarter: 2009Q3

REPORT INFORMATION
  Report Type: 
  Country: None (occurrence: None)
  Receive Date: 20090923
  Receipt Date: 20080410
  Transmission Date: 20100115
  Serious: Yes (Hospitalization)
  Sender: FDA-Public Use
  Company Number: US-ASTRAZENECA-2007UW25124

PATIENT
  Age: 464 Month
  Sex: Female

DRUGS (6)
  1. SEROQUEL [Suspect]
     Indication: DEPRESSION
     Dosage: 25 - 500 MG
     Route: 048
     Dates: start: 20010718
  2. SEROQUEL [Suspect]
     Route: 048
     Dates: start: 20060116, end: 20060512
  3. DEPAKOTE [Concomitant]
     Dosage: 500 - 1000 MG
     Route: 048
  4. RISPERDAL [Concomitant]
     Route: 048
  5. COMBIVENT [Concomitant]
     Route: 048
  6. MOTRIN [Concomitant]

REACTIONS (2)
  - DIABETES MELLITUS [None]
  - HYPERGLYCAEMIA [None]
